FAERS Safety Report 19508338 (Version 1)
Quarter: 2021Q3

REPORT INFORMATION
  Report Type: Spontaneous
  Country: US (occurrence: US)
  Receive Date: 20210708
  Receipt Date: 20210708
  Transmission Date: 20211014
  Serious: Yes (Other)
  Sender: FDA-Public Use
  Company Number: US-PFIZER INC-2021778700

PATIENT
  Age: 63 Year
  Sex: Female
  Weight: 81.65 kg

DRUGS (2)
  1. XELJANZ [Suspect]
     Active Substance: TOFACITINIB CITRATE
     Indication: RHEUMATOID ARTHRITIS
     Dosage: 5 MG, 2X/DAY [ONE TABLET IN THE MORNING AND AT NIGHT]
     Dates: end: 20210525
  2. METHOTREXATE. [Concomitant]
     Active Substance: METHOTREXATE
     Indication: RHEUMATOID ARTHRITIS
     Dosage: UNK, WEEKLY(1XWEEK INJECTION INTO TUMMY?ON SYRINGE SHE DOES 6,BUT DOES NOT KNOW UNIT OF MEASUREMENT)
     Route: 058
     Dates: start: 2017, end: 20210525

REACTIONS (1)
  - High-grade B-cell lymphoma [Unknown]

NARRATIVE: CASE EVENT DATE: 202101
